FAERS Safety Report 14879210 (Version 1)
Quarter: 2018Q2

REPORT INFORMATION
  Report Type: Spontaneous
  Country: ES (occurrence: ES)
  Receive Date: 20180511
  Receipt Date: 20180511
  Transmission Date: 20180711
  Serious: Yes (Other)
  Sender: FDA-Public Use
  Company Number: ES-BRISTOL-MYERS SQUIBB COMPANY-BMS-2018-040448

PATIENT
  Age: 54 Year
  Sex: Male

DRUGS (2)
  1. DACLATASVIR DIHYDROCHLORIDE [Suspect]
     Active Substance: DACLATASVIR DIHYDROCHLORIDE
     Indication: HEPATITIS C
     Dosage: 60 MG, DRUG INTERVAL DOSAGE UNIT: 24 HOURS
     Route: 065
  2. SIMEPREVIR [Suspect]
     Active Substance: SIMEPREVIR
     Indication: HEPATITIS C
     Dosage: 150 MG, DRUG INTERVAL DOSAGE UNIT: 24 HOURS
     Route: 065

REACTIONS (1)
  - Renal failure [Unknown]
